FAERS Safety Report 23193537 (Version 1)
Quarter: 2023Q4

REPORT INFORMATION
  Report Type: Spontaneous
  Country: US (occurrence: US)
  Receive Date: 20231116
  Receipt Date: 20231116
  Transmission Date: 20240110
  Serious: Yes (Other)
  Sender: FDA-Public Use
  Company Number: US-TEVA-2023-US-2945661

PATIENT
  Sex: Male

DRUGS (4)
  1. AUSTEDO XR [Suspect]
     Active Substance: DEUTETRABENAZINE
     Indication: Tardive dyskinesia
     Dosage: STRENGTH: 24 MG, UNIT DOSE: 36 MG
     Route: 065
     Dates: start: 20230922
  2. AUSTEDO XR [Suspect]
     Active Substance: DEUTETRABENAZINE
     Dosage: 42 MILLIGRAM DAILY; UNIT DOSE: 42 MG
     Route: 065
  3. OLANZAPINE [Concomitant]
     Active Substance: OLANZAPINE
     Indication: Product used for unknown indication
  4. SEROQUEL [Concomitant]
     Active Substance: QUETIAPINE FUMARATE
     Indication: Product used for unknown indication

REACTIONS (7)
  - Neck pain [Unknown]
  - Head discomfort [Unknown]
  - Gait disturbance [Unknown]
  - Heart rate irregular [Unknown]
  - Feeling abnormal [Unknown]
  - Torticollis [Unknown]
  - Drug ineffective [Unknown]
